FAERS Safety Report 4892202-5 (Version None)
Quarter: 2006Q1

REPORT INFORMATION
  Report Type: 
  Country: None (occurrence: None)
  Receive Date: 20060124
  Receipt Date: 20060109
  Transmission Date: 20060701
  Serious: Yes (Disabling)
  Sender: FDA-Public Use
  Company Number: 2005S1008437

PATIENT
  Age: 32 Year
  Sex: Male
  Weight: 127.0072 kg

DRUGS (2)
  1. METHOTREXATE [Suspect]
     Indication: PSORIASIS
     Dosage: 7.5 MG; QW; PO
     Route: 048
     Dates: start: 20050218, end: 20050303
  2. ACETYLSALICYLIC ACID/ CAFFEINE [Concomitant]

REACTIONS (1)
  - ARTHRITIS [None]
